FAERS Safety Report 6232299-3 (Version None)
Quarter: 2009Q2

REPORT INFORMATION
  Report Type: 
  Country: None (occurrence: None)
  Receive Date: 20090617
  Receipt Date: 20090616
  Transmission Date: 20091009
  Serious: Yes (Death, Life-Threatening, Hospitalization)
  Sender: FDA-Public Use
  Company Number: US-PFIZER INC-2004051202

PATIENT
  Sex: Female
  Weight: 67 kg

DRUGS (19)
  1. SILDENAFIL CITRATE [Suspect]
     Indication: PULMONARY HYPERTENSION
     Route: 048
     Dates: start: 20040529, end: 20040802
  2. DIGOXIN [Suspect]
     Dosage: 0.25 MG, ALTERNATE DAY
     Route: 048
     Dates: start: 20040101, end: 20040729
  3. CYTOXAN [Concomitant]
     Route: 048
  4. TOPROL-XL [Concomitant]
     Route: 048
  5. FUROSEMIDE [Concomitant]
     Route: 048
  6. WARFARIN SODIUM [Concomitant]
     Route: 048
     Dates: end: 20040729
  7. NEURONTIN [Concomitant]
     Route: 048
  8. IMIPRAMINE [Concomitant]
     Route: 048
  9. FOSAMAX [Concomitant]
     Route: 048
  10. CLONAZEPAM [Concomitant]
     Route: 048
  11. LOPERAMIDE HYDROCHLORIDE [Concomitant]
     Route: 048
  12. VITAMIN E [Concomitant]
     Route: 048
  13. VITAMIN B COMPLEX CAP [Concomitant]
     Route: 048
  14. DETROL [Concomitant]
     Route: 048
  15. TRAVATAN [Concomitant]
     Route: 048
  16. FLOLAN [Concomitant]
     Route: 042
  17. HEPARIN [Concomitant]
     Route: 042
  18. ZAROXOLYN [Concomitant]
     Route: 048
  19. BUMEX [Concomitant]
     Route: 042

REACTIONS (2)
  - PULMONARY HYPERTENSION [None]
  - THERAPEUTIC AGENT TOXICITY [None]
